FAERS Safety Report 5304519-0 (Version None)
Quarter: 2007Q2

REPORT INFORMATION
  Report Type: 
  Country: None (occurrence: None)
  Receive Date: 20070419
  Receipt Date: 20070419
  Transmission Date: 20071010
  Serious: Yes (Hospitalization, Other)
  Sender: FDA-Public Use
  Company Number: None

PATIENT
  Age: 51 Year
  Sex: Male
  Weight: 73 kg

DRUGS (2)
  1. LINEZOLID [Suspect]
     Indication: LIVER ABSCESS
     Dosage: 600 MG EVERY 12 HOURS PO
     Route: 048
     Dates: start: 20070128, end: 20070312
  2. LINEZOLID [Suspect]
     Indication: SEPSIS
     Dosage: 600 MG EVERY 12 HOURS PO
     Route: 048
     Dates: start: 20070128, end: 20070312

REACTIONS (1)
  - LACTIC ACIDOSIS [None]
